FAERS Safety Report 7164174-4 (Version None)
Quarter: 2010Q4

REPORT INFORMATION
  Report Type: 
  Country: None (occurrence: None)
  Receive Date: 20101203
  Receipt Date: 20101118
  Transmission Date: 20110411
  Serious: Yes (Other)
  Sender: FDA-Public Use
  Company Number: 021367

PATIENT
  Sex: Female

DRUGS (3)
  1. CIMZIA [Suspect]
     Indication: RHEUMATOID ARTHRITIS
     Dosage: (RECEIVED A TOTAL OF 4 INJECTIONS SUBCUTANEOUS) (SUBCUTANEOUS)
     Route: 058
     Dates: start: 20100601
  2. CIMZIA [Suspect]
     Indication: RHEUMATOID ARTHRITIS
     Dosage: (RECEIVED A TOTAL OF 4 INJECTIONS SUBCUTANEOUS) (SUBCUTANEOUS)
     Route: 058
     Dates: start: 20101112
  3. DOXYCYCLINE [Concomitant]

REACTIONS (4)
  - HYPOAESTHESIA [None]
  - PARAESTHESIA [None]
  - SPINAL DISORDER [None]
  - STAPHYLOCOCCAL INFECTION [None]
